FAERS Safety Report 9697185 (Version 1)
Quarter: 2013Q4

REPORT INFORMATION
  Report Type: Spontaneous
  Country: AU (occurrence: AU)
  Receive Date: 20131120
  Receipt Date: 20131120
  Transmission Date: 20140711
  Serious: Yes (Hospitalization, Other)
  Sender: FDA-Public Use
  Company Number: AU-MERCK-1311AUS006053

PATIENT
  Age: 59 Year
  Sex: Male

DRUGS (7)
  1. RIBAVIRIN [Suspect]
     Indication: HEPATITIS C
     Dosage: 600 MG, TWICE DAILY
     Route: 048
     Dates: start: 20090612, end: 20120818
  2. RIBAVIRIN [Suspect]
     Dosage: 600 MG, TWICE DAILY
     Route: 048
     Dates: start: 20121128
  3. PEGASYS [Suspect]
     Indication: HEPATITIS C
     Dosage: 180 MICROGRAM, EVERY WEEK
     Route: 058
     Dates: start: 20090612, end: 20120818
  4. PEGASYS [Suspect]
     Dosage: 180 MICROGRAM, EVERY WEEK
     Route: 058
     Dates: start: 20120828
  5. ATENOLOL [Concomitant]
  6. CITALOPRAM HYDROBROMIDE [Concomitant]
  7. PERINDOPRIL [Concomitant]

REACTIONS (4)
  - Sepsis [Unknown]
  - Pancytopenia [Recovered/Resolved]
  - Renal failure acute [Recovered/Resolved]
  - Lobar pneumonia [Recovered/Resolved]
